FAERS Safety Report 4842930-2 (Version None)
Quarter: 2005Q4

REPORT INFORMATION
  Report Type: 
  Country: None (occurrence: None)
  Receive Date: 20051130
  Receipt Date: 20051117
  Transmission Date: 20060501
  Serious: Yes (Hospitalization)
  Sender: FDA-Public Use
  Company Number: 2005158736

PATIENT
  Age: 65 Year
  Sex: Male

DRUGS (6)
  1. GENOTROPIN [Suspect]
     Indication: DIABETES MELLITUS
     Dosage: 0.9 MG (0.9 MG, 6 TIMES A WEEK), SUBCUTANEOUS
     Route: 058
     Dates: start: 20010605, end: 20050901
  2. GENOTROPIN [Suspect]
     Indication: HYPOPITUITARISM
     Dosage: 0.9 MG (0.9 MG, 6 TIMES A WEEK), SUBCUTANEOUS
     Route: 058
     Dates: start: 20010605, end: 20050901
  3. GENOTROPIN [Suspect]
     Indication: OFF LABEL USE
     Dosage: 0.9 MG (0.9 MG, 6 TIMES A WEEK), SUBCUTANEOUS
     Route: 058
     Dates: start: 20010605, end: 20050901
  4. GENOTROPIN [Suspect]
     Indication: DIABETES MELLITUS
     Dosage: 0.9 MG (0.9 MG, 6 TIMES A WEEK), SUBCUTANEOUS
     Route: 058
     Dates: start: 20051101
  5. GENOTROPIN [Suspect]
     Indication: HYPOPITUITARISM
     Dosage: 0.9 MG (0.9 MG, 6 TIMES A WEEK), SUBCUTANEOUS
     Route: 058
     Dates: start: 20051101
  6. GENOTROPIN [Suspect]
     Indication: OFF LABEL USE
     Dosage: 0.9 MG (0.9 MG, 6 TIMES A WEEK), SUBCUTANEOUS
     Route: 058
     Dates: start: 20051101

REACTIONS (3)
  - BLOOD GLUCOSE DECREASED [None]
  - PROSTATE CANCER [None]
  - THERAPEUTIC RESPONSE UNEXPECTED [None]
